FAERS Safety Report 9773443 (Version 3)
Quarter: 2014Q1

REPORT INFORMATION
  Report Type: Spontaneous
  Country: JP (occurrence: JP)
  Receive Date: 20131219
  Receipt Date: 20140120
  Transmission Date: 20141002
  Serious: Yes (Death, Hospitalization)
  Sender: FDA-Public Use
  Company Number: JP-BAXTER-2013BAX050170

PATIENT
  Sex: Female

DRUGS (1)
  1. DIANEAL-N PD-4 2.5 PD SOLUTION [Suspect]
     Indication: DIABETIC NEPHROPATHY
     Route: 033
     Dates: end: 20131129

REACTIONS (1)
  - Intestinal obstruction [Fatal]
